FAERS Safety Report 19767849 (Version 3)
Quarter: 2022Q2

REPORT INFORMATION
  Report Type: Report from Study
  Country: US (occurrence: US)
  Receive Date: 20210830
  Receipt Date: 20220414
  Transmission Date: 20220721
  Serious: No
  Sender: FDA-Public Use
  Company Number: US-KYOWAKIRIN-2021BKK014473

PATIENT

DRUGS (5)
  1. CRYSVITA [Suspect]
     Active Substance: BUROSUMAB-TWZA
     Indication: Phosphorus metabolism disorder
     Dosage: 70 MG  (DOSE ACHIVED BY COMBINATION OF STRENGTHS: 10 AND 30 MG/ML), EVERY 14 DAYS
     Route: 058
     Dates: start: 20200317
  2. CRYSVITA [Suspect]
     Active Substance: BUROSUMAB-TWZA
     Dosage: 70 MG  (DOSE ACHIVED BY COMBINATION OF STRENGTHS: 10 AND 30 MG/ML), EVERY 14 DAYS
     Route: 058
  3. CRYSVITA [Suspect]
     Active Substance: BUROSUMAB-TWZA
     Indication: Phosphorus metabolism disorder
     Dosage: 70 MG (DOSE ACHIEVED BY COMBINATION OF STRENGTHS: 10 AND 30 MG/ML), EVERY 14 DAYS
     Route: 058
     Dates: start: 20200317
  4. CRYSVITA [Suspect]
     Active Substance: BUROSUMAB-TWZA
     Dosage: 70 MG (DOSE ACHIEVED BY COMBINATION OF STRENGTHS: 10 AND 30 MG/ML), EVERY 14 DAYS
     Route: 058
  5. CHOLECALCIFEROL [Concomitant]
     Active Substance: CHOLECALCIFEROL
     Indication: Product used for unknown indication
     Dosage: 250 MCG (50000 UNITS), 1 TABLET 1X1 WEEK X 3 MONTHS
     Route: 065

REACTIONS (2)
  - Hyperaesthesia teeth [Recovered/Resolved]
  - Toothache [Unknown]

NARRATIVE: CASE EVENT DATE: 20211122
